FAERS Safety Report 8072676-1 (Version None)
Quarter: 2012Q1

REPORT INFORMATION
  Report Type: 
  Country: None (occurrence: None)
  Receive Date: 20120120
  Receipt Date: 20120109
  Transmission Date: 20120608
  Serious: Yes (Other)
  Sender: FDA-Public Use
  Company Number: OTH-PAT-2012001

PATIENT
  Age: 6 Year
  Sex: Male

DRUGS (2)
  1. CYSTADANE [Suspect]
     Indication: HOMOCYSTINURIA
     Dosage: 3 GRAMS EVERY DAY
     Dates: start: 20120110
  2. CYSTADANE [Suspect]
     Indication: HOMOCYSTINURIA
     Dosage: 3 GRAMS EVERY DAY
     Dates: start: 20101228

REACTIONS (2)
  - DRUG DOSE OMISSION [None]
  - CONVULSION [None]
